FAERS Safety Report 5196377-2 (Version None)
Quarter: 2006Q4

REPORT INFORMATION
  Report Type: 
  Country: None (occurrence: None)
  Receive Date: 20061222
  Receipt Date: 20061219
  Transmission Date: 20070319
  Serious: Yes (Disabling, Other)
  Sender: FDA-Public Use
  Company Number: CIP06002945

PATIENT
  Sex: Female

DRUGS (1)
  1. OPTINATE  (RISEDRONATE SODIUM) TABLET, 5MG [Suspect]
     Indication: OSTEOPOROSIS
     Dosage: 5 MG DAILY, ORAL
     Route: 048
     Dates: start: 20040101, end: 20061205

REACTIONS (2)
  - OESOPHAGEAL STENOSIS [None]
  - ORAL INTAKE REDUCED [None]
